FAERS Safety Report 4873427-1 (Version None)
Quarter: 2005Q4

REPORT INFORMATION
  Report Type: 
  Country: None (occurrence: None)
  Receive Date: 20051201
  Receipt Date: 20050813
  Transmission Date: 20060501
  Serious: No
  Sender: FDA-Public Use
  Company Number: 2005PV001327

PATIENT
  Age: 80 Year
  Sex: Female
  Weight: 78.0187 kg

DRUGS (9)
  1. BYETTA [Suspect]
     Indication: DIABETES MELLITUS NON-INSULIN-DEPENDENT
     Dosage: 10 MCG; BID : 5 MCG : SC
     Route: 058
     Dates: start: 20050101, end: 20050811
  2. BYETTA [Suspect]
     Indication: DIABETES MELLITUS NON-INSULIN-DEPENDENT
     Dosage: 10 MCG; BID : 5 MCG : SC
     Route: 058
     Dates: start: 20050812, end: 20050813
  3. GLIPIZIDE [Concomitant]
  4. GLUCOPHAGE [Concomitant]
  5. ZETIA [Concomitant]
  6. DIOVAN HCT [Concomitant]
  7. SYNTHROID [Concomitant]
  8. METOPROLOL [Concomitant]
  9. VITAMIN B-12 [Concomitant]

REACTIONS (4)
  - INJECTION SITE HAEMORRHAGE [None]
  - INJECTION SITE PAIN [None]
  - INSOMNIA [None]
  - WEIGHT DECREASED [None]
